FAERS Safety Report 13118855 (Version 3)
Quarter: 2017Q2

REPORT INFORMATION
  Report Type: Report from Study
  Country: US (occurrence: US)
  Receive Date: 20170116
  Receipt Date: 20170429
  Transmission Date: 20170830
  Serious: Yes (Hospitalization)
  Sender: FDA-Public Use
  Company Number: PHEH2017US001160

PATIENT
  Age: 59 Year
  Sex: Male
  Weight: 110.4 kg

DRUGS (1)
  1. ENTRESTO [Suspect]
     Active Substance: SACUBITRIL\VALSARTAN
     Indication: PRODUCT USED FOR UNKNOWN INDICATION
     Dosage: 100 MG, BID
     Route: 048

REACTIONS (3)
  - Weight decreased [Unknown]
  - Poisoning [Unknown]
  - Dyspnoea [Unknown]

NARRATIVE: CASE EVENT DATE: 201612
